FAERS Safety Report 15591903 (Version 1)
Quarter: 2018Q4

REPORT INFORMATION
  Report Type: Spontaneous
  Country: DK (occurrence: DK)
  Receive Date: 20181106
  Receipt Date: 20181106
  Transmission Date: 20190205
  Serious: Yes (Other)
  Sender: FDA-Public Use
  Company Number: DK-NOVOPROD-629873

PATIENT
  Age: 61 Year
  Sex: Female

DRUGS (1)
  1. VAGIFEM [Suspect]
     Active Substance: ESTRADIOL
     Indication: PRODUCT USED FOR UNKNOWN INDICATION
     Dosage: 265 STRENGTH AND DOSE: UNKNOWN (DK: STYRKE OG DOSIS: UKENDTE)
     Route: 067

REACTIONS (1)
  - Suicidal ideation [Recovered/Resolved]
